FAERS Safety Report 24868185 (Version 1)
Quarter: 2025Q1

REPORT INFORMATION
  Report Type: Report from Study
  Country: DE (occurrence: DE)
  Receive Date: 20250121
  Receipt Date: 20250121
  Transmission Date: 20250409
  Serious: Yes (Hospitalization)
  Sender: TEVA
  Company Number: DE-TEVA-VS-3286683

PATIENT
  Age: 79 Year
  Sex: Male
  Weight: 81 kg

DRUGS (3)
  1. RIBAVIRIN [Suspect]
     Active Substance: RIBAVIRIN
     Indication: Chronic hepatitis C
     Route: 048
     Dates: start: 20130519
  2. BOCEPREVIR [Suspect]
     Active Substance: BOCEPREVIR
     Indication: Chronic hepatitis C
     Route: 048
     Dates: start: 20130616
  3. PEGINTERFERON ALFA-2A [Suspect]
     Active Substance: PEGINTERFERON ALFA-2A
     Indication: Chronic hepatitis C
     Dosage: DATE OF LAST RECENT DOSE PRIOR TO EVENT ON 2013-07-21
     Route: 058
     Dates: start: 20130519

REACTIONS (2)
  - Syncope [Recovering/Resolving]
  - Pancytopenia [Recovering/Resolving]

NARRATIVE: CASE EVENT DATE: 20130723
